FAERS Safety Report 5848451-2 (Version None)
Quarter: 2008Q3

REPORT INFORMATION
  Report Type: 
  Country: None (occurrence: None)
  Receive Date: 20080818
  Receipt Date: 20080812
  Transmission Date: 20090109
  Serious: Yes (Other)
  Sender: FDA-Public Use
  Company Number: US-ASTRAZENECA-2008UW15964

PATIENT
  Age: 57 Year
  Sex: Female

DRUGS (7)
  1. ARIMIDEX [Suspect]
     Indication: BREAST CANCER
     Route: 048
     Dates: start: 20080101
  2. DIOVAN [Concomitant]
  3. TRIAM [Concomitant]
  4. ANTARA [Concomitant]
  5. VYTORIN [Concomitant]
  6. WELLBUTRIN [Concomitant]
  7. VITAMIN TAB [Concomitant]

REACTIONS (5)
  - ANXIETY [None]
  - DEPRESSION [None]
  - FLIGHT OF IDEAS [None]
  - INSOMNIA [None]
  - SUICIDAL IDEATION [None]
